FAERS Safety Report 5916713-6 (Version None)
Quarter: 2008Q4

REPORT INFORMATION
  Report Type: 
  Country: None (occurrence: None)
  Receive Date: 20081013
  Receipt Date: 20081001
  Transmission Date: 20090506
  Serious: Yes (Disabling, Other)
  Sender: FDA-Public Use
  Company Number: JP-PFIZER INC-2008070073

PATIENT
  Sex: Female

DRUGS (5)
  1. SOLANAX [Suspect]
     Indication: DEPRESSION
     Route: 048
     Dates: start: 19870101, end: 20080520
  2. RIVOTRIL [Concomitant]
     Route: 048
     Dates: end: 20080520
  3. DEPAKENE [Concomitant]
     Route: 048
  4. PAXIL [Concomitant]
     Route: 048
     Dates: end: 20080520
  5. LENDORMIN [Concomitant]
     Route: 048
     Dates: end: 20080520

REACTIONS (1)
  - BLEPHAROSPASM [None]
